FAERS Safety Report 6519225-4 (Version None)
Quarter: 2009Q4

REPORT INFORMATION
  Report Type: 
  Country: None (occurrence: None)
  Receive Date: 20091228
  Receipt Date: 20091216
  Transmission Date: 20100525
  Serious: Yes (Other)
  Sender: FDA-Public Use
  Company Number: PHHY2009DE56632

PATIENT
  Sex: Female

DRUGS (1)
  1. ACLASTA [Suspect]
     Dosage: 5 MG/YEAR
     Route: 042
     Dates: start: 20091207, end: 20091207

REACTIONS (8)
  - DEPRESSION [None]
  - DIZZINESS [None]
  - ERYTHEMA [None]
  - INFLUENZA LIKE ILLNESS [None]
  - JOINT SWELLING [None]
  - MENTAL DISORDER [None]
  - PRURITUS GENERALISED [None]
  - SUICIDAL IDEATION [None]
